FAERS Safety Report 5590785-3 (Version None)
Quarter: 2008Q1

REPORT INFORMATION
  Report Type: 
  Country: None (occurrence: None)
  Receive Date: 20080110
  Receipt Date: 20020312
  Transmission Date: 20080703
  Serious: Yes (Other)
  Sender: FDA-Public Use
  Company Number: 2008S1000003

PATIENT
  Sex: Male

DRUGS (1)
  1. LUXIQ [Suspect]
     Indication: DRUG USE FOR UNKNOWN INDICATION
     Dosage: 0.12 PCT; TOP
     Route: 061

REACTIONS (1)
  - GRAND MAL CONVULSION [None]
